FAERS Safety Report 7623585-0 (Version None)
Quarter: 2011Q3

REPORT INFORMATION
  Report Type: 
  Country: None (occurrence: None)
  Receive Date: 20110720
  Receipt Date: 20110707
  Transmission Date: 20111222
  Serious: Yes (Hospitalization, Other)
  Sender: FDA-Public Use
  Company Number: DE-ELI_LILLY_AND_COMPANY-DE201106001476

PATIENT
  Age: 69 Year
  Sex: Female

DRUGS (7)
  1. SOTALOL HCL [Concomitant]
     Dosage: 1 DF, QD
  2. FORTEO [Suspect]
     Dosage: UNK, QD
     Route: 058
     Dates: start: 20101222
  3. ONDASETRON [Concomitant]
     Dosage: UNK, PRN
  4. METOCLOPRAMIDE [Concomitant]
     Dosage: UNK, PRN
  5. OXYGESIC [Concomitant]
     Dosage: 1 DF, QD
  6. LEVOTHYROXINE SODIUM [Concomitant]
     Dosage: 1 DF, QD
  7. MACROGOL 3350 [Concomitant]
     Dosage: UNK, PRN

REACTIONS (5)
  - GENERAL PHYSICAL HEALTH DETERIORATION [None]
  - FRACTURE [None]
  - NIGHT SWEATS [None]
  - NAUSEA [None]
  - WALDENSTROM'S MACROGLOBULINAEMIA [None]
